FAERS Safety Report 17900161 (Version 1)
Quarter: 2020Q2

REPORT INFORMATION
  Report Type: Spontaneous
  Country: US (occurrence: US)
  Receive Date: 20200616
  Receipt Date: 20200616
  Transmission Date: 20200714
  Serious: Yes (Death)
  Sender: FDA-Public Use
  Company Number: None

PATIENT
  Age: 87 Year
  Sex: Male
  Weight: 85.5 kg

DRUGS (14)
  1. DILTIAZEM. [Concomitant]
     Active Substance: DILTIAZEM
  2. VITAMIN D [Concomitant]
     Active Substance: VITAMIN D NOS
  3. PIQRAY [Suspect]
     Active Substance: ALPELISIB
     Indication: HEPATIC CANCER
     Route: 048
     Dates: start: 20200512, end: 20200616
  4. VITAMIN B12 [Concomitant]
     Active Substance: CYANOCOBALAMIN
  5. TYLENOL [Concomitant]
     Active Substance: ACETAMINOPHEN
  6. SYMBICORT [Concomitant]
     Active Substance: BUDESONIDE\FORMOTEROL FUMARATE DIHYDRATE
  7. TRAMADOL. [Concomitant]
     Active Substance: TRAMADOL
  8. ADVIL [Concomitant]
     Active Substance: IBUPROFEN
  9. ZOFRAN [Concomitant]
     Active Substance: ONDANSETRON HYDROCHLORIDE
  10. VALSARTAN AND HYDROCHLOROTHIAZIDE [Concomitant]
     Active Substance: HYDROCHLOROTHIAZIDE\VALSARTAN
  11. ALBUTEROL. [Concomitant]
     Active Substance: ALBUTEROL
  12. ATROVENT [Concomitant]
     Active Substance: IPRATROPIUM BROMIDE
  13. FASLODEX [Concomitant]
     Active Substance: FULVESTRANT
  14. LIPITOR [Concomitant]
     Active Substance: ATORVASTATIN CALCIUM

REACTIONS (1)
  - Death [None]

NARRATIVE: CASE EVENT DATE: 20200616
